FAERS Safety Report 5688671-3 (Version None)
Quarter: 2008Q1

REPORT INFORMATION
  Report Type: 
  Country: None (occurrence: None)
  Receive Date: 20080331
  Receipt Date: 20080327
  Transmission Date: 20080703
  Serious: Yes (Death, Hospitalization, Other)
  Sender: FDA-Public Use
  Company Number: PHHY2008JP03592

PATIENT
  Age: 69 Year
  Sex: Female

DRUGS (2)
  1. GLEEVEC [Suspect]
     Indication: ACUTE LYMPHOCYTIC LEUKAEMIA
     Dosage: UNK, UNK
     Route: 048
     Dates: start: 20070101
  2. GLEEVEC [Suspect]
     Dosage: 400 MG PER DAY
     Route: 048

REACTIONS (8)
  - ACUTE LYMPHOCYTIC LEUKAEMIA RECURRENT [None]
  - CYTOGENETIC ABNORMALITY [None]
  - LYMPHADENOPATHY [None]
  - MULTI-ORGAN FAILURE [None]
  - NAUSEA [None]
  - PLATELET COUNT DECREASED [None]
  - STEM CELL TRANSPLANT [None]
  - TRANSPLANT REJECTION [None]
